FAERS Safety Report 7571986-1 (Version None)
Quarter: 2011Q2

REPORT INFORMATION
  Report Type: 
  Country: None (occurrence: None)
  Receive Date: 20110624
  Receipt Date: 20110622
  Transmission Date: 20111010
  Serious: Yes (Life-Threatening)
  Sender: FDA-Public Use
  Company Number: CA-SHIONOGI, INC-2011000106

PATIENT

DRUGS (2)
  1. TWINJECT 0.3 [Suspect]
     Indication: HYPERSENSITIVITY
     Dosage: 0.3 MG, PRN
     Route: 058
     Dates: start: 20110622
  2. GRAVOL TAB [Concomitant]

REACTIONS (3)
  - MEDICATION ERROR [None]
  - PRODUCT QUALITY ISSUE [None]
  - DEVICE MALFUNCTION [None]
